FAERS Safety Report 8376605-2 (Version None)
Quarter: 2012Q2

REPORT INFORMATION
  Report Type: 
  Country: None (occurrence: None)
  Receive Date: 20120522
  Receipt Date: 20120515
  Transmission Date: 20120825
  Serious: No
  Sender: FDA-Public Use
  Company Number: US-PFIZER INC-2012118959

PATIENT
  Sex: Male

DRUGS (1)
  1. ELLENCE [Suspect]
     Indication: OESOPHAGEAL CARCINOMA
     Dosage: 95 MG, EVERY 3 WEEKS

REACTIONS (2)
  - DISEASE PROGRESSION [None]
  - OESOPHAGEAL CARCINOMA [None]
